FAERS Safety Report 5284837-5 (Version None)
Quarter: 2007Q1

REPORT INFORMATION
  Report Type: 
  Country: None (occurrence: None)
  Receive Date: 20061229
  Receipt Date: 20060313
  Transmission Date: 20070707
  Serious: Yes (Hospitalization)
  Sender: FDA-Public Use
  Company Number: PHEH2005US13987

PATIENT
  Sex: Male

DRUGS (9)
  1. CLOZARIL [Suspect]
     Indication: PSYCHOTIC DISORDER
  2. CLOZAPINE [Suspect]
     Indication: PSYCHOTIC DISORDER
     Dosage: SEE IMAGE
     Dates: start: 20041105
  3. CATAPRES-TTS-1 [Concomitant]
  4. PROLIXIN [Concomitant]
  5. IPRATROPIUM BROMIDE [Concomitant]
  6. COGENTIN [Concomitant]
  7. PREVACID [Concomitant]
  8. VENLAFAXINE HCL [Concomitant]
  9. CLONAZEPAM [Concomitant]

REACTIONS (15)
  - ALANINE AMINOTRANSFERASE INCREASED [None]
  - ASPARTATE AMINOTRANSFERASE INCREASED [None]
  - BLOOD ALKALINE PHOSPHATASE INCREASED [None]
  - BLOOD CHOLESTEROL INCREASED [None]
  - BLOOD TRIGLYCERIDES INCREASED [None]
  - BLOOD URIC ACID INCREASED [None]
  - CHOLELITHIASIS [None]
  - CHOLESTASIS [None]
  - EOSINOPHIL COUNT INCREASED [None]
  - GAMMA-GLUTAMYLTRANSFERASE DECREASED [None]
  - GLUCOSE TOLERANCE IMPAIRED [None]
  - HEPATIC STEATOSIS [None]
  - PSYCHOTIC DISORDER [None]
  - TACHYCARDIA [None]
  - ULTRASOUND LIVER ABNORMAL [None]
